FAERS Safety Report 5285999-6 (Version None)
Quarter: 2007Q1

REPORT INFORMATION
  Report Type: 
  Country: None (occurrence: None)
  Receive Date: 20070329
  Receipt Date: 20070316
  Transmission Date: 20070707
  Serious: Yes (Death)
  Sender: FDA-Public Use
  Company Number: CLOF-10474

PATIENT
  Age: 75 Year
  Sex: Female
  Weight: 65.8 kg

DRUGS (2)
  1. CYTARABINE [Suspect]
     Indication: ACUTE MYELOID LEUKAEMIA
     Dosage: 1600 MG QD X 5
     Dates: start: 20061221, end: 20061225
  2. CLOFARABINE (BLINDED) [Suspect]
     Indication: ACUTE MYELOID LEUKAEMIA
     Dosage: 64 MG QD X 5 IV
     Route: 042
     Dates: start: 20061221, end: 20061225

REACTIONS (18)
  - BLOOD BICARBONATE DECREASED [None]
  - BLOOD CULTURE POSITIVE [None]
  - BLOOD PH DECREASED [None]
  - EMBOLISM [None]
  - ENTEROCOCCAL INFECTION [None]
  - FEBRILE NEUTROPENIA [None]
  - GLOMERULAR FILTRATION RATE DECREASED [None]
  - IMMOBILE [None]
  - OXYGEN SATURATION DECREASED [None]
  - PAIN [None]
  - PANCYTOPENIA [None]
  - PATHOGEN RESISTANCE [None]
  - PCO2 DECREASED [None]
  - PO2 DECREASED [None]
  - PSEUDOMONAL SEPSIS [None]
  - SKIN LESION [None]
  - SUBARACHNOID HAEMORRHAGE [None]
  - TRICHOSPORON INFECTION [None]
